FAERS Safety Report 9224850 (Version 1)
Quarter: 2013Q2

REPORT INFORMATION
  Report Type: Spontaneous
  Country: US (occurrence: US)
  Receive Date: 20130411
  Receipt Date: 20130411
  Transmission Date: 20140414
  Serious: Yes (Hospitalization)
  Sender: FDA-Public Use
  Company Number: US-SANOFI-AVENTIS-2013SA035789

PATIENT
  Age: 87 Year
  Sex: Male

DRUGS (8)
  1. OXALIPLATIN [Suspect]
     Indication: LUNG SQUAMOUS CELL CARCINOMA STAGE IV
     Route: 042
  2. FOLINIC ACID [Concomitant]
     Indication: LUNG SQUAMOUS CELL CARCINOMA STAGE IV
  3. FOLINIC ACID [Concomitant]
     Indication: LUNG SQUAMOUS CELL CARCINOMA STAGE IV
  4. FLUOROURACIL [Concomitant]
     Indication: LUNG SQUAMOUS CELL CARCINOMA STAGE IV
  5. FLUOROURACIL [Concomitant]
     Indication: LUNG SQUAMOUS CELL CARCINOMA STAGE IV
  6. PACLITAXEL [Concomitant]
     Indication: LUNG SQUAMOUS CELL CARCINOMA STAGE IV
  7. CARBOPLATIN [Concomitant]
     Indication: LUNG SQUAMOUS CELL CARCINOMA STAGE IV
  8. THERAPEUTIC RADIOPHARMACEUTICALS [Concomitant]
     Indication: LUNG SQUAMOUS CELL CARCINOMA STAGE IV
     Dosage: 50.4 GY

REACTIONS (5)
  - Infusion site extravasation [Recovering/Resolving]
  - Medication error [Unknown]
  - Dyspnoea [Recovering/Resolving]
  - Chest pain [Recovering/Resolving]
  - Pleural effusion [Recovering/Resolving]
